FAERS Safety Report 5944761-9 (Version None)
Quarter: 2008Q4

REPORT INFORMATION
  Report Type: 
  Country: None (occurrence: None)
  Receive Date: 20081106
  Receipt Date: 20081106
  Transmission Date: 20090506
  Serious: Yes (Hospitalization)
  Sender: FDA-Public Use
  Company Number: None

PATIENT
  Age: 24 Year
  Sex: Female
  Weight: 64 kg

DRUGS (1)
  1. VARENICLINE 1MG PFIZER [Suspect]
     Indication: SMOKING CESSATION THERAPY
     Dosage: 1MG TWICE DAILY PO
     Route: 048
     Dates: start: 20080801, end: 20081029

REACTIONS (5)
  - DELUSION [None]
  - GASTRIC DISORDER [None]
  - NAUSEA [None]
  - PARANOIA [None]
  - SUICIDAL IDEATION [None]
